FAERS Safety Report 4718729-4 (Version None)
Quarter: 2005Q3

REPORT INFORMATION
  Report Type: 
  Country: None (occurrence: None)
  Receive Date: 20050719
  Receipt Date: 20050711
  Transmission Date: 20060218
  Serious: Yes (Hospitalization, Other)
  Sender: FDA-Public Use
  Company Number: 2005088497

PATIENT
  Age: 78 Year
  Sex: Female

DRUGS (8)
  1. LIPITOR [Suspect]
     Indication: BLOOD CHOLESTEROL INCREASED
     Dosage: 10 MG ORAL
     Route: 048
  2. FOSAMAX [Concomitant]
  3. ASPIRIN [Concomitant]
  4. COVERSYL (PERINODOPRIL) [Concomitant]
  5. XANAX [Concomitant]
  6. PANTOPRAZOLE [Concomitant]
  7. ZIMOVANE (ZOPICLONE) [Concomitant]
  8. BISOPROLOL FUMARATE [Concomitant]

REACTIONS (4)
  - BLOOD CREATINE PHOSPHOKINASE INCREASED [None]
  - LIVER FUNCTION TEST ABNORMAL [None]
  - MUSCLE ATROPHY [None]
  - MYALGIA [None]
